FAERS Safety Report 4312623-9 (Version None)
Quarter: 2004Q1

REPORT INFORMATION
  Report Type: 
  Country: None (occurrence: None)
  Receive Date: 20040305
  Receipt Date: 20040217
  Transmission Date: 20041129
  Serious: Yes (Hospitalization)
  Sender: FDA-Public Use
  Company Number: WAES 0402USA01216

PATIENT
  Age: 39 Year
  Sex: Female
  Weight: 86 kg

DRUGS (3)
  1. PREVACID [Concomitant]
  2. MAXALT [Suspect]
     Indication: MIGRAINE
     Route: 048
     Dates: start: 20030901, end: 20030901
  3. MAXALT [Suspect]
     Route: 048
     Dates: start: 20031003, end: 20031003

REACTIONS (16)
  - DISORIENTATION [None]
  - DIZZINESS [None]
  - DYSARTHRIA [None]
  - DYSPNOEA [None]
  - DYSTONIA [None]
  - HEADACHE [None]
  - LOSS OF CONSCIOUSNESS [None]
  - MEDICATION ERROR [None]
  - NAUSEA [None]
  - RESPIRATORY DISORDER [None]
  - SPEECH DISORDER [None]
  - STRESS SYMPTOMS [None]
  - SWELLING [None]
  - TONGUE DISORDER [None]
  - TREMOR [None]
  - VOMITING [None]
